FAERS Safety Report 19611292 (Version 1)
Quarter: 2021Q3

REPORT INFORMATION
  Report Type: Spontaneous
  Country: US (occurrence: US)
  Receive Date: 20210726
  Receipt Date: 20210726
  Transmission Date: 20211014
  Serious: No
  Sender: FDA-Public Use
  Company Number: US-ENDO PHARMACEUTICALS INC-2021-002544

PATIENT
  Age: 59 Year
  Sex: Male
  Weight: 104.31 kg

DRUGS (11)
  1. EDEX [Suspect]
     Active Substance: ALPROSTADIL
     Dosage: 20 MCG UNKNOWN, UNKNOWN
     Route: 065
     Dates: start: 20210414
  2. VITAMIN B12 [Concomitant]
     Active Substance: CYANOCOBALAMIN
     Indication: PRODUCT USED FOR UNKNOWN INDICATION
  3. VITAMIN D                          /00107901/ [Concomitant]
     Active Substance: ERGOCALCIFEROL
     Indication: PRODUCT USED FOR UNKNOWN INDICATION
  4. VENLAFAXINE [Concomitant]
     Active Substance: VENLAFAXINE HYDROCHLORIDE
     Indication: PRODUCT USED FOR UNKNOWN INDICATION
  5. EDEX [Suspect]
     Active Substance: ALPROSTADIL
     Indication: ERECTILE DYSFUNCTION
     Dosage: 20 MCG UNKNOWN, UNKNOWN
     Route: 065
  6. EDEX [Suspect]
     Active Substance: ALPROSTADIL
     Indication: ERECTILE DYSFUNCTION
     Dosage: 20 MCG UNKNOWN, UNKNOWN
     Route: 065
  7. EDEX [Suspect]
     Active Substance: ALPROSTADIL
     Indication: ERECTILE DYSFUNCTION
     Dosage: 20 MCG UNKNOWN, UNKNOWN
     Route: 065
  8. EDEX [Suspect]
     Active Substance: ALPROSTADIL
     Dosage: 20 MCG UNKNOWN, UNKNOWN
     Route: 065
     Dates: start: 20210414
  9. EDEX [Suspect]
     Active Substance: ALPROSTADIL
     Dosage: 20 MCG UNKNOWN, UNKNOWN
     Route: 065
     Dates: start: 20210414
  10. HYDROCHLOROTHIAZIDE. [Concomitant]
     Active Substance: HYDROCHLOROTHIAZIDE
     Indication: PRODUCT USED FOR UNKNOWN INDICATION
  11. TAMSULOSIN [Concomitant]
     Active Substance: TAMSULOSIN
     Indication: PRODUCT USED FOR UNKNOWN INDICATION

REACTIONS (1)
  - Drug ineffective [Unknown]

NARRATIVE: CASE EVENT DATE: 20210414
